FAERS Safety Report 13265250 (Version 1)
Quarter: 2017Q1

REPORT INFORMATION
  Report Type: Spontaneous
  Country: US (occurrence: US)
  Receive Date: 20170223
  Receipt Date: 20170223
  Transmission Date: 20170428
  Serious: No
  Sender: FDA-Public Use
  Company Number: US-GLAXOSMITHKLINE-US2017024848

PATIENT
  Age: 66 Year
  Sex: Female

DRUGS (1)
  1. FLONASE SENSIMIST ALLERGY RELIEF [Suspect]
     Active Substance: FLUTICASONE FUROATE
     Indication: HYPERSENSITIVITY
     Dosage: UNK, 1 SPRAY IN EACH NOSTRIL
     Dates: start: 20170220

REACTIONS (3)
  - Wrong technique in product usage process [Unknown]
  - Inappropriate schedule of drug administration [Unknown]
  - Incorrect dose administered [Unknown]
